FAERS Safety Report 18518108 (Version 2)
Quarter: 2021Q1

REPORT INFORMATION
  Report Type: Spontaneous
  Country: US (occurrence: US)
  Receive Date: 20201118
  Receipt Date: 20210210
  Transmission Date: 20210419
  Serious: Yes (Other)
  Sender: FDA-Public Use
  Company Number: US-BAYER-2020-248934

PATIENT
  Age: 20 Year
  Sex: Female
  Weight: 98.41 kg

DRUGS (8)
  1. KYLEENA [Suspect]
     Active Substance: LEVONORGESTREL
     Indication: CONTRACEPTION
     Dosage: 17.5  ?G PER DAY CONTINUOUSLY
     Route: 015
     Dates: start: 20200316, end: 20201030
  2. IRON FERROUS SULFATE [Concomitant]
     Active Substance: FERROUS SULFATE
  3. SERTRALINE [Concomitant]
     Active Substance: SERTRALINE HYDROCHLORIDE
  4. RANITIDINE. [Concomitant]
     Active Substance: RANITIDINE
  5. SPAQ CO DISP [Concomitant]
     Active Substance: AMODIAQUINE HYDROCHLORIDE\PYRIMETHAMINE\SULFADOXINE
  6. VITAMIN D3 [Concomitant]
     Active Substance: CHOLECALCIFEROL
  7. ESCITALOPRAM [Concomitant]
     Active Substance: ESCITALOPRAM OXALATE
  8. SIG [Concomitant]

REACTIONS (8)
  - Pelvic pain [None]
  - Depression [None]
  - Genital haemorrhage [None]
  - Hot flush [None]
  - Nausea [None]
  - Device issue [None]
  - Back pain [None]
  - Cold sweat [None]

NARRATIVE: CASE EVENT DATE: 20200420
